FAERS Safety Report 19283567 (Version 1)
Quarter: 2021Q2

REPORT INFORMATION
  Report Type: Spontaneous
  Country: US (occurrence: US)
  Receive Date: 20210521
  Receipt Date: 20210521
  Transmission Date: 20210717
  Serious: No
  Sender: FDA-Public Use
  Company Number: None

PATIENT
  Age: 72 Year
  Sex: Male

DRUGS (2)
  1. TRANEXAMIC ACID (TRANEXAMIC ACID 100MG/ML INJ) [Suspect]
     Active Substance: TRANEXAMIC ACID
     Dosage: ?          OTHER ROUTE:IV?
     Route: 042
     Dates: start: 20210504, end: 20210504
  2. APIXABAN (APIXABAN 5MG TAB) [Suspect]
     Active Substance: APIXABAN
     Indication: ATRIAL FIBRILLATION
     Route: 048
     Dates: start: 20201203, end: 20210504

REACTIONS (4)
  - Device physical property issue [None]
  - Mouth haemorrhage [None]
  - Tooth extraction [None]
  - Dental caries [None]

NARRATIVE: CASE EVENT DATE: 20210504
